FAERS Safety Report 10566231 (Version 1)
Quarter: 2014Q4

REPORT INFORMATION
  Report Type: Spontaneous
  Country: US (occurrence: None)
  Receive Date: 20141104
  Receipt Date: 20141104
  Transmission Date: 20150529
  Serious: Yes (Other)
  Sender: FDA-Public Use
  Company Number: None

PATIENT
  Age: 45 Year
  Sex: Female
  Weight: 106.6 kg

DRUGS (2)
  1. LISINOPRIL. [Suspect]
     Active Substance: LISINOPRIL
     Indication: HYPERTENSION
     Dosage: 1 EVERYDAY  ONCE DAILY TAKEN BY MOUTH
     Route: 048
     Dates: start: 20140917, end: 20141103
  2. SIMVASTATIN 20MG [Suspect]
     Active Substance: SIMVASTATIN
     Indication: BLOOD CHOLESTEROL INCREASED
     Dosage: 1  ONCE DAILY TAKEN BY MOUTH
     Route: 048
     Dates: start: 20140917, end: 20141103

REACTIONS (3)
  - Arthralgia [None]
  - Gait disturbance [None]
  - Mobility decreased [None]

NARRATIVE: CASE EVENT DATE: 20141103
